FAERS Safety Report 16869562 (Version 1)
Quarter: 2019Q3

REPORT INFORMATION
  Report Type: Spontaneous
  Country: US (occurrence: US)
  Receive Date: 20190930
  Receipt Date: 20190930
  Transmission Date: 20191005
  Serious: Yes (Hospitalization, Other)
  Sender: FDA-Public Use
  Company Number: US-PFIZER INC-2019405146

PATIENT
  Sex: Female

DRUGS (13)
  1. PROMETHAZINE HCL [Interacting]
     Active Substance: PROMETHAZINE HYDROCHLORIDE
     Indication: DEPRESSION
  2. METHADONE [Interacting]
     Active Substance: METHADONE HYDROCHLORIDE
     Dosage: 115 MG, UNK
  3. CLONIDINE. [Interacting]
     Active Substance: CLONIDINE
     Indication: ANXIETY
     Dosage: UP TO 0.9MG
  4. CLONAZEPAM. [Interacting]
     Active Substance: CLONAZEPAM
     Indication: DEPRESSION
  5. CLONIDINE. [Interacting]
     Active Substance: CLONIDINE
     Indication: DEPRESSION
     Dosage: 0.1 MG, 3X/DAY
  6. PROMETHAZINE HCL [Interacting]
     Active Substance: PROMETHAZINE HYDROCHLORIDE
     Indication: ANXIETY
     Dosage: UNK
  7. GABAPENTIN. [Interacting]
     Active Substance: GABAPENTIN
     Indication: DEPRESSION
  8. METHADONE [Interacting]
     Active Substance: METHADONE HYDROCHLORIDE
     Dosage: 70 MG, UNK (70 MG AT 14 WEEKS)
  9. GABAPENTIN. [Suspect]
     Active Substance: GABAPENTIN
     Indication: ANXIETY
     Dosage: UP TO 3200MG
  10. METHADONE [Interacting]
     Active Substance: METHADONE HYDROCHLORIDE
     Dosage: 120 MG, UNK (DOSE GRADUALLY INCREASED, 120 MG AT 37 WEEKS)
  11. CLONAZEPAM. [Interacting]
     Active Substance: CLONAZEPAM
     Indication: ANXIETY
     Dosage: 3 MG, DAILY
  12. METHADONE [Interacting]
     Active Substance: METHADONE HYDROCHLORIDE
     Indication: DRUG USE DISORDER
     Dosage: UNK ({70MG)
  13. METHADONE [Interacting]
     Active Substance: METHADONE HYDROCHLORIDE
     Dosage: 140 MG, UNK

REACTIONS (4)
  - Drug abuse [Unknown]
  - Drug interaction [Unknown]
  - Sedation [Unknown]
  - Maternal exposure during pregnancy [Unknown]
